FAERS Safety Report 5592838-2 (Version None)
Quarter: 2008Q1

REPORT INFORMATION
  Report Type: 
  Country: None (occurrence: None)
  Receive Date: 20080116
  Receipt Date: 20080111
  Transmission Date: 20080703
  Serious: Yes (Death, Hospitalization)
  Sender: FDA-Public Use
  Company Number: PHBS2008ES00722

PATIENT
  Age: 49 Year
  Sex: Male

DRUGS (6)
  1. SIMULECT [Suspect]
     Indication: RENAL TRANSPLANT
     Dosage: 10 MG, UNK
     Route: 042
     Dates: start: 20070927
  2. URBASON [Suspect]
     Indication: RENAL TRANSPLANT
     Dosage: 100 MG, UNK
     Route: 042
     Dates: start: 20070927, end: 20070929
  3. GOBEMICINA [Suspect]
     Indication: RENAL TRANSPLANT
     Dosage: 2 G, UNK
     Route: 042
     Dates: start: 20070927
  4. PROGRAF [Suspect]
     Indication: RENAL TRANSPLANT
     Dosage: 12 MG, BID
     Route: 048
     Dates: start: 20070927, end: 20070929
  5. TOBRADISTIN [Suspect]
     Indication: RENAL TRANSPLANT
     Dosage: 240 MG, UNK
     Route: 042
     Dates: start: 20070927
  6. CELLCEPT [Suspect]
     Indication: RENAL TRANSPLANT
     Dosage: 1 G, UNK
     Route: 048
     Dates: start: 20070927, end: 20070929

REACTIONS (13)
  - ANAEMIA [None]
  - ARTERIOVENOUS GRAFT THROMBOSIS [None]
  - BLOOD AMYLASE INCREASED [None]
  - CHOLECYSTITIS INFECTIVE [None]
  - NEUTROPHIL COUNT INCREASED [None]
  - PANCREATIC ABSCESS [None]
  - PANCREATITIS HAEMORRHAGIC [None]
  - PANCREATITIS NECROTISING [None]
  - REMOVAL OF TRANSPLANTED ORGAN [None]
  - RENAL ARTERY STENOSIS [None]
  - SEVERE ACUTE RESPIRATORY SYNDROME [None]
  - VENOUS THROMBOSIS [None]
  - WHITE BLOOD CELL COUNT INCREASED [None]
